FAERS Safety Report 11998938 (Version 1)
Quarter: 2016Q1

REPORT INFORMATION
  Report Type: Spontaneous
  Country: None (occurrence: None)
  Receive Date: 20160203
  Receipt Date: 20160203
  Transmission Date: 20160526
  Serious: Yes (Life-Threatening, Hospitalization)
  Sender: FDA-Public Use
  Company Number: None

PATIENT
  Age: 49 Year
  Sex: Male

DRUGS (22)
  1. CITALOPRAM [Concomitant]
     Active Substance: CITALOPRAM HYDROBROMIDE
  2. TIZANIDINE. [Concomitant]
     Active Substance: TIZANIDINE
  3. BUSPIRONE [Concomitant]
     Active Substance: BUSPIRONE HYDROCHLORIDE
  4. CHOLECALCIFEROL [Concomitant]
     Active Substance: CHOLECALCIFEROL
  5. GABAPENTIN. [Concomitant]
     Active Substance: GABAPENTIN
  6. PRIMIDONE. [Concomitant]
     Active Substance: PRIMIDONE
  7. SIMVASTATIN. [Concomitant]
     Active Substance: SIMVASTATIN
  8. NAPROXEN. [Concomitant]
     Active Substance: NAPROXEN
  9. PANTOPRAZOLE [Concomitant]
     Active Substance: PANTOPRAZOLE SODIUM
  10. INVEGA SUSTENNA [Suspect]
     Active Substance: PALIPERIDONE PALMITATE
     Indication: SCHIZOAFFECTIVE DISORDER
     Route: 030
     Dates: start: 20151217
  11. ALBUERTOL INHALER [Concomitant]
  12. ALFUZOSIN [Concomitant]
     Active Substance: ALFUZOSIN
  13. BENZTROPINE [Concomitant]
     Active Substance: BENZTROPINE
  14. BUDESONIDE. [Concomitant]
     Active Substance: BUDESONIDE
  15. MONTELUKAST [Concomitant]
     Active Substance: MONTELUKAST SODIUM
  16. MULTIVITAMIN [Concomitant]
     Active Substance: VITAMINS
  17. RANITIDINE [Concomitant]
     Active Substance: RANITIDINE\RANITIDINE HYDROCHLORIDE
  18. FOMOTEROL [Concomitant]
  19. MIRALAX [Concomitant]
     Active Substance: POLYETHYLENE GLYCOL 3350
  20. TADALAFIL [Concomitant]
     Active Substance: TADALAFIL
  21. TRIAMCINOLONE [Concomitant]
     Active Substance: TRIAMCINOLONE
  22. NASAL SPRAY [Concomitant]
     Active Substance: UNSPECIFIED INGREDIENT

REACTIONS (3)
  - Lip swelling [None]
  - Swollen tongue [None]
  - Upper airway obstruction [None]

NARRATIVE: CASE EVENT DATE: 20160130
